FAERS Safety Report 23289306 (Version 1)
Quarter: 2023Q4

REPORT INFORMATION
  Report Type: Spontaneous
  Country: US (occurrence: US)
  Receive Date: 20231212
  Receipt Date: 20231212
  Transmission Date: 20240110
  Serious: Yes (Other)
  Sender: FDA-Public Use
  Company Number: US-UCBSA-2023058195

PATIENT
  Sex: Female
  Weight: 63.492 kg

DRUGS (1)
  1. CIMZIA [Suspect]
     Active Substance: CERTOLIZUMAB PEGOL
     Indication: Rheumatoid arthritis
     Dosage: 200 MILLIGRAM, EV 2 WEEKS(QOW)
     Route: 058
     Dates: start: 202309

REACTIONS (4)
  - Medical device battery replacement [Unknown]
  - Candida infection [Unknown]
  - Dysuria [Unknown]
  - Burning sensation [Unknown]

NARRATIVE: CASE EVENT DATE: 20230101
